FAERS Safety Report 8329159-0 (Version None)
Quarter: 2012Q2

REPORT INFORMATION
  Report Type: 
  Country: None (occurrence: None)
  Receive Date: 20120502
  Receipt Date: 20101022
  Transmission Date: 20120825
  Serious: No
  Sender: FDA-Public Use
  Company Number: US-TEVA-2010005582

PATIENT
  Sex: Male
  Weight: 78.996 kg

DRUGS (11)
  1. SYNTHROID [Concomitant]
  2. PERCOCET [Concomitant]
  3. NUVIGIL [Suspect]
     Indication: SLEEP APNOEA SYNDROME
     Dosage: 75 MILLIGRAM;
     Route: 048
     Dates: start: 20101009
  4. PREDNISONE [Concomitant]
  5. HUMALOG [Concomitant]
  6. LISINOPRIL [Concomitant]
     Dates: start: 20100817
  7. METOPROLOL TARTRATE [Concomitant]
     Dates: start: 20100817
  8. PAROXETINE [Concomitant]
  9. REGLAN [Concomitant]
  10. XANAX [Concomitant]
  11. NEORAL [Concomitant]
     Dates: start: 19930101

REACTIONS (1)
  - FATIGUE [None]
